FAERS Safety Report 11090217 (Version 1)
Quarter: 2015Q2

REPORT INFORMATION
  Report Type: Spontaneous
  Country: CA (occurrence: None)
  Receive Date: 20150501
  Receipt Date: 20150501
  Transmission Date: 20150821
  Serious: Yes (Hospitalization, Other)
  Sender: FDA-Public Use
  Company Number: 2839185

PATIENT
  Age: 51 Year
  Sex: Female
  Weight: 91 kg

DRUGS (26)
  1. HEPARIN SODIUM. [Suspect]
     Active Substance: HEPARIN SODIUM
     Indication: HAEMODIALYSIS
     Dosage: HEMODIALYSIS
  2. BICART [Suspect]
     Active Substance: SODIUM BICARBONATE
     Indication: HAEMODIALYSIS
     Dosage: HEMODIALYSIS
  3. DIMENHYDRINATE. [Concomitant]
     Active Substance: DIMENHYDRINATE
  4. NPH INSULIN [Concomitant]
     Active Substance: INSULIN BEEF
  5. CITALOPRAM [Concomitant]
     Active Substance: CITALOPRAM HYDROBROMIDE
  6. SODIUM CHLORIDE. [Suspect]
     Active Substance: SODIUM CHLORIDE
     Indication: HAEMODIALYSIS
     Dosage: HEMODIALYSIS
  7. DOCUSATE SODIUM. [Concomitant]
     Active Substance: DOCUSATE SODIUM
  8. ESOMEPRAZOLE [Concomitant]
     Active Substance: ESOMEPRAZOLE
  9. SENNOSIDE [Concomitant]
     Active Substance: SENNOSIDES
  10. SEVELAMER [Concomitant]
     Active Substance: SEVELAMER
  11. ATORVASTATIN CALCIUM. [Concomitant]
     Active Substance: ATORVASTATIN CALCIUM
  12. HUMALOG [Concomitant]
     Active Substance: INSULIN LISPRO
  13. SODIUM CITRATE. [Concomitant]
     Active Substance: SODIUM CITRATE
  14. SYMBICORT [Concomitant]
     Active Substance: BUDESONIDE\FORMOTEROL FUMARATE DIHYDRATE
  15. AMITRIPTYLINE [Concomitant]
     Active Substance: AMITRIPTYLINE
  16. ARANESP [Concomitant]
     Active Substance: DARBEPOETIN ALFA
  17. TERBUTALINE [Concomitant]
     Active Substance: TERBUTALINE
  18. ACID CONCENTRATE D12299 [Suspect]
     Active Substance: ACETIC ACID\CALCIUM CHLORIDE\DEXTROSE\MAGNESIUM CHLORIDE\POTASSIUM CHLORIDE\SODIUM CHLORIDE
     Indication: HAEMODIALYSIS
     Dosage: HEMODIALYSIS
  19. DOMPERIDONE [Concomitant]
     Active Substance: DOMPERIDONE
  20. FERROUS GLUCONATE [Concomitant]
     Active Substance: FERROUS GLUCONATE
  21. ONE ALPHA [Concomitant]
     Active Substance: ALFACALCIDOL
  22. PREDNISONE. [Concomitant]
     Active Substance: PREDNISONE
  23. FERROUS FUMARATE [Concomitant]
     Active Substance: FERROUS FUMARATE
  24. ACETAMINOPHEN. [Concomitant]
     Active Substance: ACETAMINOPHEN
  25. BISOPROLOL [Concomitant]
     Active Substance: BISOPROLOL
  26. PROCHLORPERAZINE. [Concomitant]
     Active Substance: PROCHLORPERAZINE

REACTIONS (5)
  - Drug administration error [None]
  - Amnesia [None]
  - Haemorrhage [None]
  - Anaemia [None]
  - Loss of consciousness [None]
